FAERS Safety Report 4806550-8 (Version None)
Quarter: 2005Q4

REPORT INFORMATION
  Report Type: 
  Country: None (occurrence: None)
  Receive Date: 20051019
  Receipt Date: 20051006
  Transmission Date: 20060501
  Serious: Yes (Hospitalization)
  Sender: FDA-Public Use
  Company Number: 2005BI014334

PATIENT
  Age: 43 Year
  Sex: Female

DRUGS (15)
  1. AVONEX LYOPHILIZED [Suspect]
     Indication: MULTIPLE SCLEROSIS
     Dosage: 7.5 UG; IM
     Route: 030
     Dates: start: 20011130
  2. AVONEX LYOPHILIZED [Suspect]
     Indication: MULTIPLE SCLEROSIS
     Dosage: 30 UG QW IM
     Route: 030
  3. AVONEX LIQUID [Suspect]
     Indication: MULTIPLE SCLEROSIS
     Dosage: 30 UG QW IM
     Route: 030
  4. PRAVACHOL [Concomitant]
  5. LOTREL [Concomitant]
  6. EFFEXOR [Concomitant]
  7. SYNTHROID [Concomitant]
  8. NEURONTIN [Concomitant]
  9. IMITREX [Concomitant]
  10. NORVASC [Concomitant]
  11. AMBIEN [Concomitant]
  12. KLONOPIN [Concomitant]
  13. TRIAMCINOLINE [Concomitant]
  14. LANTUS [Concomitant]
  15. HUMALOG [Concomitant]

REACTIONS (1)
  - ANKLE FRACTURE [None]
